FAERS Safety Report 21876364 (Version 2)
Quarter: 2023Q2

REPORT INFORMATION
  Report Type: Report from Study
  Country: BR (occurrence: BR)
  Receive Date: 20230118
  Receipt Date: 20230511
  Transmission Date: 20230722
  Serious: Yes (Other)
  Sender: FDA-Public Use
  Company Number: BR-JNJFOC-20230121032

PATIENT
  Age: 47 Year
  Sex: Female
  Weight: 74 kg

DRUGS (10)
  1. INFLIXIMAB [Suspect]
     Active Substance: INFLIXIMAB
     Indication: Ankylosing spondylitis
     Dosage: TREATMENT START DATE ALSO REPORTED AS 05-JUN-2018
     Route: 041
     Dates: start: 2017
  2. INFLIXIMAB [Suspect]
     Active Substance: INFLIXIMAB
     Indication: Crohn^s disease
     Dosage: 6 DOSES
     Route: 041
     Dates: start: 20180605
  3. DULOXETINE [Concomitant]
     Active Substance: DULOXETINE
     Indication: Neuralgia
     Dosage: 120MG/DAY
  4. DULOXETINE [Concomitant]
     Active Substance: DULOXETINE
     Indication: Depression
  5. PREGABALIN [Concomitant]
     Active Substance: PREGABALIN
     Indication: Neuralgia
     Dosage: 300MG/DAY
  6. PREGABALIN [Concomitant]
     Active Substance: PREGABALIN
     Indication: Depression
  7. LOSARTAN [Concomitant]
     Active Substance: LOSARTAN
     Indication: Hypertension
     Dosage: 100MG/DAY
  8. CYCLOBENZAPRINE [Concomitant]
     Active Substance: CYCLOBENZAPRINE
     Indication: Ankylosing spondylitis
     Dosage: 20MG/DAY
  9. DIPYRONE [Concomitant]
     Active Substance: DIPYRONE
     Indication: Pain
  10. SULFASALAZINE [Concomitant]
     Active Substance: SULFASALAZINE

REACTIONS (9)
  - Osteonecrosis [Unknown]
  - Ankylosing spondylitis [Unknown]
  - Surgery [Unknown]
  - Spinal operation [Unknown]
  - Decreased immune responsiveness [Unknown]
  - Memory impairment [Unknown]
  - Allodynia [Unknown]
  - COVID-19 [Unknown]
  - Off label use [Unknown]

NARRATIVE: CASE EVENT DATE: 20220101
